FAERS Safety Report 12046543 (Version 1)
Quarter: 2016Q1

REPORT INFORMATION
  Report Type: Report from Study
  Country: US (occurrence: US)
  Receive Date: 20160208
  Receipt Date: 20160208
  Transmission Date: 20160526
  Serious: No
  Sender: FDA-Public Use
  Company Number: US-ABBVIE-15P-163-1370208-00

PATIENT
  Sex: Female

DRUGS (3)
  1. HUMIRA [Suspect]
     Active Substance: ADALIMUMAB
     Indication: CROHN^S DISEASE
     Route: 065
  2. IMURAN [Suspect]
     Active Substance: AZATHIOPRINE
     Indication: PRODUCT USED FOR UNKNOWN INDICATION
     Route: 065
  3. IMURAN [Suspect]
     Active Substance: AZATHIOPRINE
     Dosage: ONE AND HALF PILLS ON ODD DAYS AND TWO PILLS ON EVEN DAYS
     Route: 065

REACTIONS (2)
  - Injection site pain [Recovered/Resolved]
  - White blood cell count decreased [Recovering/Resolving]
